FAERS Safety Report 7335194-1 (Version None)
Quarter: 2011Q1

REPORT INFORMATION
  Report Type: 
  Country: None (occurrence: None)
  Receive Date: 20110307
  Receipt Date: 20110301
  Transmission Date: 20110831
  Serious: No
  Sender: FDA-Public Use
  Company Number: US-PFIZER INC-2011044868

PATIENT
  Sex: Female
  Weight: 33 kg

DRUGS (1)
  1. GENOTROPIN [Suspect]
     Indication: TURNER'S SYNDROME
     Dosage: 2.4 MG, DAILY
     Route: 058
     Dates: start: 20090101

REACTIONS (1)
  - IRRITABILITY [None]
